FAERS Safety Report 15245831 (Version 5)
Quarter: 2018Q3

REPORT INFORMATION
  Report Type: Spontaneous
  Country: DE (occurrence: DE)
  Receive Date: 20180806
  Receipt Date: 20180907
  Transmission Date: 20181010
  Serious: Yes (Hospitalization, Congenital Anomaly, Other)
  Sender: FDA-Public Use
  Company Number: PHHY2018DE062994

PATIENT
  Sex: Male

DRUGS (6)
  1. CLOPIDOGREL [Suspect]
     Active Substance: CLOPIDOGREL BISULFATE
     Indication: FOETAL EXPOSURE DURING PREGNANCY
     Dosage: 75 MG (MATERNAL DOSE)
     Route: 064
  2. ACETYLSALICYLIC ACID [Suspect]
     Active Substance: ASPIRIN
     Indication: FOETAL EXPOSURE DURING PREGNANCY
     Dosage: 100 MG (MATERNAL DOSE)
     Route: 064
  3. METOPROLOL. [Suspect]
     Active Substance: METOPROLOL
     Indication: FOETAL EXPOSURE DURING PREGNANCY
     Dosage: UNK
     Route: 064
  4. PRAVASTATIN. [Suspect]
     Active Substance: PRAVASTATIN
     Indication: FOETAL EXPOSURE DURING PREGNANCY
     Dosage: UNK
     Route: 064
  5. RAMIPRIL. [Suspect]
     Active Substance: RAMIPRIL
     Indication: FOETAL EXPOSURE DURING PREGNANCY
     Dosage: EXPOSURE DURATION:0?8 WEEKS
     Route: 064
  6. DIHYDRALAZINE [Suspect]
     Active Substance: DIHYDRALAZINE
     Indication: FOETAL EXPOSURE DURING PREGNANCY
     Dosage: EXPOSURE DURATION: 8+1?38 WEEKS
     Route: 064

REACTIONS (11)
  - Supravalvular aortic stenosis [Unknown]
  - Seizure [Unknown]
  - Atrial septal defect [Recovered/Resolved with Sequelae]
  - Heart disease congenital [Unknown]
  - Aorta hypoplasia [Recovered/Resolved with Sequelae]
  - Patent ductus arteriosus [Unknown]
  - Shone complex [Unknown]
  - Foetal exposure during pregnancy [Unknown]
  - Ventricular septal defect [Unknown]
  - Coarctation of the aorta [Recovered/Resolved with Sequelae]
  - Off label use [Unknown]
